FAERS Safety Report 11939422 (Version 1)
Quarter: 2016Q1

REPORT INFORMATION
  Report Type: Spontaneous
  Country: JP (occurrence: JP)
  Receive Date: 20160122
  Receipt Date: 20160122
  Transmission Date: 20160526
  Serious: Yes (Death, Other)
  Sender: FDA-Public Use
  Company Number: JP-CELGENE-JPN-2016012633

PATIENT

DRUGS (2)
  1. REVLIMID [Suspect]
     Active Substance: LENALIDOMIDE
     Indication: PLASMA CELL MYELOMA
     Route: 048
  2. DEXAMETHASONE. [Suspect]
     Active Substance: DEXAMETHASONE
     Indication: PLASMA CELL MYELOMA
     Route: 065

REACTIONS (30)
  - Death [Fatal]
  - Bone marrow failure [Unknown]
  - Pyrexia [Unknown]
  - Peripheral sensory neuropathy [Unknown]
  - Dizziness [Unknown]
  - Somnolence [Unknown]
  - Insomnia [Unknown]
  - White blood cell count decreased [Unknown]
  - Dysgeusia [Unknown]
  - Pneumonia [Unknown]
  - Nausea [Unknown]
  - Decreased appetite [Unknown]
  - Pruritus [Unknown]
  - Hypoalbuminaemia [Unknown]
  - Renal disorder [Unknown]
  - Liver disorder [Unknown]
  - Platelet count decreased [Unknown]
  - Haemoglobin decreased [Unknown]
  - Headache [Unknown]
  - Oedema peripheral [Unknown]
  - Constipation [Unknown]
  - Vision blurred [Unknown]
  - Tremor [Unknown]
  - Neutrophil count decreased [Unknown]
  - Face oedema [Unknown]
  - Rash [Unknown]
  - Depression [Unknown]
  - Fatigue [Unknown]
  - Peripheral motor neuropathy [Unknown]
  - Dry mouth [Unknown]
